FAERS Safety Report 23205349 (Version 3)
Quarter: 2024Q4

REPORT INFORMATION
  Report Type: Spontaneous
  Country: US (occurrence: US)
  Receive Date: 20231120
  Receipt Date: 20241008
  Transmission Date: 20250114
  Serious: Yes (Other)
  Sender: PFIZER
  Company Number: US-PFIZER INC-PV202300187529

PATIENT
  Age: 73 Year
  Sex: Female
  Weight: 59.32 kg

DRUGS (4)
  1. IBRANCE [Suspect]
     Active Substance: PALBOCICLIB
     Indication: Breast cancer female
     Dosage: 1 P.O. (PER ORAL) EVERY DAY ON DAYS 1-21 OF Q (EVERY) 28 DAY CYCLE
     Route: 048
     Dates: start: 20200713
  2. GABAPENTIN [Suspect]
     Active Substance: GABAPENTIN
     Dosage: UNK
  3. LETROZOLE [Suspect]
     Active Substance: LETROZOLE
     Indication: Breast cancer metastatic
     Dosage: UNK
     Dates: start: 20200611
  4. DENOSUMAB [Suspect]
     Active Substance: DENOSUMAB
     Dosage: UNK

REACTIONS (7)
  - Neutropenia [Unknown]
  - Upper respiratory tract infection [Unknown]
  - White blood cell count decreased [Not Recovered/Not Resolved]
  - Pain [Recovering/Resolving]
  - Arthralgia [Unknown]
  - Haematocrit decreased [Unknown]
  - Platelet count decreased [Unknown]

NARRATIVE: CASE EVENT DATE: 20200708
